FAERS Safety Report 20573245 (Version 1)
Quarter: 2022Q1

REPORT INFORMATION
  Report Type: Spontaneous
  Country: US (occurrence: None)
  Receive Date: 20220309
  Receipt Date: 20220309
  Transmission Date: 20220423
  Serious: Yes (Disabling)
  Sender: FDA-Public Use
  Company Number: None

PATIENT
  Age: 54 Year
  Sex: Male

DRUGS (1)
  1. ALUMINUM ZIRCONIUM TRICHLOROHYDREX GLY [Suspect]
     Active Substance: ALUMINUM ZIRCONIUM TRICHLOROHYDREX GLY
     Dosage: OTHER QUANTITY : 1 APPLICATION ;?FREQUENCY : ONCE;?
     Route: 061
     Dates: start: 202202, end: 202202

REACTIONS (12)
  - Chemical burn [None]
  - Blister [None]
  - Back pain [None]
  - Gait disturbance [None]
  - Hypersensitivity [None]
  - Myalgia [None]
  - Pain of skin [None]
  - Musculoskeletal chest pain [None]
  - Skin warm [None]
  - Scab [None]
  - Macule [None]
  - Chills [None]

NARRATIVE: CASE EVENT DATE: 20220201
